FAERS Safety Report 18177596 (Version 2)
Quarter: 2020Q3

REPORT INFORMATION
  Report Type: Spontaneous
  Country: US (occurrence: US)
  Receive Date: 20200821
  Receipt Date: 20200929
  Transmission Date: 20201103
  Serious: No
  Sender: FDA-Public Use
  Company Number: US-BIOGEN-2020BI00912924

PATIENT
  Age: 59 Year
  Sex: Male

DRUGS (1)
  1. TECFIDERA [Suspect]
     Active Substance: DIMETHYL FUMARATE
     Indication: MULTIPLE SCLEROSIS
     Route: 065
     Dates: start: 20190809

REACTIONS (4)
  - Lymphocyte count decreased [Unknown]
  - White blood cell count decreased [Recovered/Resolved]
  - Fatigue [Unknown]
  - Lipids decreased [Recovered/Resolved]

NARRATIVE: CASE EVENT DATE: 20200804
